FAERS Safety Report 7031597-3 (Version None)
Quarter: 2010Q4

REPORT INFORMATION
  Report Type: 
  Country: None (occurrence: None)
  Receive Date: 20101006
  Receipt Date: 20101006
  Transmission Date: 20110411
  Serious: No
  Sender: FDA-Public Use
  Company Number: None

PATIENT
  Sex: Female
  Weight: 53.0709 kg

DRUGS (4)
  1. BUPROPRION HCL [Suspect]
     Indication: ANXIETY
     Dosage: 100MG BID PO
     Route: 048
     Dates: start: 20080102, end: 20100731
  2. BUPROPRION HCL [Suspect]
     Indication: DEPRESSION
     Dosage: 100MG BID PO
     Route: 048
     Dates: start: 20080102, end: 20100731
  3. CITALOPRAM HYDROBROMIDE [Suspect]
     Indication: ANXIETY
     Dosage: 30 MG QD PO
     Route: 048
     Dates: start: 20100920, end: 20100920
  4. CITALOPRAM HYDROBROMIDE [Suspect]
     Indication: DEPRESSION
     Dosage: 30 MG QD PO
     Route: 048
     Dates: start: 20100920, end: 20100920

REACTIONS (7)
  - ANXIETY [None]
  - DIZZINESS [None]
  - INSOMNIA [None]
  - MOOD SWINGS [None]
  - NAUSEA [None]
  - PRODUCT SUBSTITUTION ISSUE [None]
  - TREMOR [None]
